FAERS Safety Report 6730328-1 (Version None)
Quarter: 2010Q2

REPORT INFORMATION
  Report Type: 
  Country: None (occurrence: None)
  Receive Date: 20100518
  Receipt Date: 20100507
  Transmission Date: 20101027
  Serious: Yes (Hospitalization)
  Sender: FDA-Public Use
  Company Number: A0731299A

PATIENT
  Age: 68 Year
  Sex: Female
  Weight: 82.7 kg

DRUGS (9)
  1. AVANDIA [Suspect]
     Indication: TYPE 2 DIABETES MELLITUS
     Dosage: 6MG PER DAY
     Route: 048
     Dates: start: 20041117, end: 20070101
  2. SYNTHROID [Concomitant]
  3. CPAP [Concomitant]
  4. GLYBURIDE [Concomitant]
  5. TOPROL-XL [Concomitant]
  6. SPIRIVA [Concomitant]
  7. ALBUTEROL [Concomitant]
  8. NORVASC [Concomitant]
     Dates: end: 20060103
  9. CARDURA [Concomitant]
     Dates: start: 20060103

REACTIONS (36)
  - ANGINA PECTORIS [None]
  - ASTHENIA [None]
  - BLINDNESS [None]
  - CARDIAC ARREST [None]
  - CARDIAC FAILURE CONGESTIVE [None]
  - CEREBROVASCULAR ACCIDENT [None]
  - CHEST PAIN [None]
  - CONFUSIONAL STATE [None]
  - CORONARY ARTERY DISEASE [None]
  - DIZZINESS [None]
  - DYSPNOEA [None]
  - ECONOMIC PROBLEM [None]
  - FATIGUE [None]
  - FLUID OVERLOAD [None]
  - FLUID RETENTION [None]
  - HEART INJURY [None]
  - HEPATIC FAILURE [None]
  - HYPERTENSION [None]
  - HYPONATRAEMIA [None]
  - INAPPROPRIATE ANTIDIURETIC HORMONE SECRETION [None]
  - INTERSTITIAL LUNG DISEASE [None]
  - KIDNEY INFECTION [None]
  - LIVER INJURY [None]
  - LUNG DISORDER [None]
  - MACULAR DEGENERATION [None]
  - MACULAR OEDEMA [None]
  - MITRAL VALVE INCOMPETENCE [None]
  - OCULAR HYPERAEMIA [None]
  - PAIN [None]
  - PAIN IN EXTREMITY [None]
  - PRESYNCOPE [None]
  - RENAL DISORDER [None]
  - SLEEP APNOEA SYNDROME [None]
  - SLEEP DISORDER [None]
  - SWELLING [None]
  - TRICUSPID VALVE INCOMPETENCE [None]
